FAERS Safety Report 13601279 (Version 1)
Quarter: 2017Q2

REPORT INFORMATION
  Report Type: Spontaneous
  Country: US (occurrence: US)
  Receive Date: 20170601
  Receipt Date: 20170601
  Transmission Date: 20170830
  Serious: Yes (Disabling)
  Sender: FDA-Public Use
  Company Number: None

PATIENT
  Age: 63 Year
  Sex: Female
  Weight: 83.99 kg

DRUGS (30)
  1. SPIRIVA [Concomitant]
     Active Substance: TIOTROPIUM BROMIDE MONOHYDRATE
  2. PREVACID GENERIC [Concomitant]
  3. TRIAMTERENE. [Concomitant]
     Active Substance: TRIAMTERENE
  4. POTASSIUM [Concomitant]
     Active Substance: POTASSIUM
  5. ASPIRIN. [Concomitant]
     Active Substance: ASPIRIN
  6. GLUCOSAMINE/CHONDROITIN [Concomitant]
  7. ESOMEPRAZOLE DR 40MG CAP [Suspect]
     Active Substance: ESOMEPRAZOLE
     Indication: GASTROOESOPHAGEAL REFLUX DISEASE
     Route: 048
     Dates: start: 20170419, end: 20170519
  8. MIGRANAL SPRAY [Concomitant]
  9. REFRESH OPTIVE ADVANCED EYE DROPS [Concomitant]
  10. IBUPROFEN. [Concomitant]
     Active Substance: IBUPROFEN
  11. PROAIR HFA [Concomitant]
     Active Substance: ALBUTEROL SULFATE
  12. XYZAL GENERIC [Concomitant]
  13. PRISTIQ EXTENDED-RELEASE [Concomitant]
     Active Substance: DESVENLAFAXINE SUCCINATE
  14. ESTRADIOL TRANSDERMAL SYSTEM [Concomitant]
     Active Substance: ESTRADIOL
  15. VITAMIN D [Concomitant]
     Active Substance: CHOLECALCIFEROL
  16. FISH OIL [Concomitant]
     Active Substance: FISH OIL
  17. ADVAIR HFA [Concomitant]
     Active Substance: FLUTICASONE PROPIONATE\SALMETEROL XINAFOATE
  18. ALBUTEROL SULFATE. [Concomitant]
     Active Substance: ALBUTEROL SULFATE
  19. NYSTATIN SWISH + SWALLOW [Concomitant]
  20. QVAR [Concomitant]
     Active Substance: BECLOMETHASONE DIPROPIONATE
  21. LOSARTAN. [Concomitant]
     Active Substance: LOSARTAN
  22. CENTRUM SILVER FOR WOMEN [Concomitant]
     Active Substance: MINERALS\VITAMINS
  23. TRIAMCINOLONE ACETONIDE NASAL SPRAY [Concomitant]
     Active Substance: TRIAMCINOLONE ACETONIDE
  24. RESTASIS [Concomitant]
     Active Substance: CYCLOSPORINE
  25. CALCIUM PLUS D [Concomitant]
     Active Substance: CALCIUM\VITAMIN D
  26. SINGULAIR [Concomitant]
     Active Substance: MONTELUKAST SODIUM
  27. SIMVASTATIN. [Concomitant]
     Active Substance: SIMVASTATIN
  28. HYDROCORTISONE. [Concomitant]
     Active Substance: HYDROCORTISONE
  29. SUPER B COMPLEX [Concomitant]
     Active Substance: CYANOCOBALAMIN\DEXPANTHENOL\NIACINAMIDE\PYRIDOXINE HYDROCHLORIDE\RIBOFLAVIN 5^-PHOSPHATE SODIUM\THIAMINE HYDROCHLORIDE\VITAMIN B COMPLEX
  30. ADRENAL SUPPORT SUPPLEMENTS [Concomitant]

REACTIONS (4)
  - Laryngitis [None]
  - Scar [None]
  - Product substitution issue [None]
  - Laryngeal haemorrhage [None]

NARRATIVE: CASE EVENT DATE: 20170425
